FAERS Safety Report 20891851 (Version 1)
Quarter: 2022Q2

REPORT INFORMATION
  Report Type: Spontaneous
  Country: CA (occurrence: CA)
  Receive Date: 20220530
  Receipt Date: 20220530
  Transmission Date: 20220721
  Serious: Yes (Other)
  Sender: FDA-Public Use
  Company Number: CA-PFIZER INC-202200755319

PATIENT
  Age: 42 Year
  Sex: Female

DRUGS (16)
  1. METHOTREXATE SODIUM [Suspect]
     Active Substance: METHOTREXATE SODIUM
     Indication: Crohn^s disease
     Dosage: 15 MG, WEEKLY
     Route: 048
  2. AMLODIPINE [Concomitant]
     Active Substance: AMLODIPINE BESYLATE
     Indication: Hypertension
     Dosage: 5 MG, 1X/DAY
     Route: 048
  3. BETAMETHASONE DIPROPIONATE [Concomitant]
     Active Substance: BETAMETHASONE DIPROPIONATE
     Dosage: 1 DF 1X/DAY ONCE A DAY AS NEEDED
     Route: 061
  4. CHOLESTYRAMINE [Concomitant]
     Active Substance: CHOLESTYRAMINE
     Dosage: 1 DF 1X/DAY MIX SACHET CONTENT IN 120-180 ML OF WATER
     Route: 048
  5. DESONIDE [Concomitant]
     Active Substance: DESONIDE
     Indication: Dermatitis
     Dosage: 1 DF, AS NEEDED
     Route: 061
  6. FOLIC ACID [Concomitant]
     Active Substance: FOLIC ACID
     Dosage: 5 MG WEEKLY, NOT ON SAME DAY AS METHOTREXATE
     Route: 048
  7. FERROUS SULFATE [Concomitant]
     Active Substance: FERROUS SULFATE
     Dosage: 300 MG, 1X/DAY
     Route: 048
  8. BUDESONIDE\FORMOTEROL [Concomitant]
     Active Substance: BUDESONIDE\FORMOTEROL
     Dosage: 1 DF 2X/DAY, 6+200 MCG TWICE A DAY AS NEEDED
     Route: 055
  9. INFLECTRA [Concomitant]
     Active Substance: INFLIXIMAB-DYYB
     Indication: Crohn^s disease
     Dosage: 1600 MG, NOT YET STARTED
     Route: 042
  10. MOMETASONE [Concomitant]
     Active Substance: MOMETASONE
     Dosage: 50 UG 2X/DAY, 2 PUFFS IN EACH NOSTRIL A DAY
     Route: 055
  11. METRONIDAZOLE [Concomitant]
     Active Substance: METRONIDAZOLE
     Dosage: 1 DF, 1X/DAY
     Route: 061
  12. PANTOPRAZOLE [Concomitant]
     Active Substance: PANTOPRAZOLE
     Dosage: 40 MG, 2X/DAY
     Route: 048
  13. ALBUTEROL [Concomitant]
     Active Substance: ALBUTEROL
     Dosage: 100 UG, 2 PUFFS UP TO 4 TIMES PER DAY AS NEEDED
     Route: 055
  14. TERBINAFINE [Concomitant]
     Active Substance: TERBINAFINE
     Dosage: 1 DF 1X/DAY ONCE A DAY AS NEEDED
     Route: 061
  15. VITAMIN B12 [Concomitant]
     Active Substance: CYANOCOBALAMIN
     Dosage: 250 UG, 1X/DAY
     Route: 048
  16. VITAMIN D3 [Concomitant]
     Active Substance: CHOLECALCIFEROL
     Dosage: 10000 IU, 2X/WEEK
     Route: 048

REACTIONS (3)
  - Inflammatory bowel disease [Unknown]
  - Crohn^s disease [Unknown]
  - Off label use [Unknown]
